FAERS Safety Report 5094857-1 (Version None)
Quarter: 2006Q3

REPORT INFORMATION
  Report Type: 
  Country: None (occurrence: None)
  Receive Date: 20060901
  Receipt Date: 20060509
  Transmission Date: 20061208
  Serious: Yes (Hospitalization)
  Sender: FDA-Public Use
  Company Number: PHBS2006AT06965

PATIENT
  Age: 75 Year
  Sex: Male

DRUGS (2)
  1. ZOMETA [Suspect]
     Indication: PLASMACYTOMA
     Dosage: UNK, UNK
     Route: 065
  2. LANCOVIN [Concomitant]
     Route: 065
     Dates: start: 20030301

REACTIONS (7)
  - ACTINOMYCOSIS [None]
  - CHRONIC OBSTRUCTIVE PULMONARY DISEASE [None]
  - IMPAIRED HEALING [None]
  - MAXILLOFACIAL OPERATION [None]
  - NEURODERMATITIS [None]
  - OSTEOMYELITIS [None]
  - TOOTH EXTRACTION [None]
